FAERS Safety Report 11652219 (Version 1)
Quarter: 2015Q4

REPORT INFORMATION
  Report Type: Spontaneous
  Country: CA (occurrence: CA)
  Receive Date: 20151022
  Receipt Date: 20151022
  Transmission Date: 20160304
  Serious: Yes (Other)
  Sender: FDA-Public Use
  Company Number: CA-TEVA-601900ACC

PATIENT
  Age: 23 Year
  Sex: Male
  Weight: 72.19 kg

DRUGS (1)
  1. BUPROPION. [Suspect]
     Active Substance: BUPROPION
     Indication: DEPRESSION
     Dosage: ONCE
     Route: 048

REACTIONS (3)
  - Urticaria [Recovered/Resolved]
  - Somnolence [Recovered/Resolved]
  - Angioedema [Recovered/Resolved]
